FAERS Safety Report 6188143-6 (Version None)
Quarter: 2009Q2

REPORT INFORMATION
  Report Type: 
  Country: None (occurrence: None)
  Receive Date: 20090513
  Receipt Date: 20080605
  Transmission Date: 20091009
  Serious: No
  Sender: FDA-Public Use
  Company Number: A0728303A

PATIENT
  Age: 80 Year
  Sex: Male

DRUGS (5)
  1. DYNACIRC CR [Suspect]
     Indication: HYPERTENSION
     Dosage: 10MG PER DAY
     Route: 048
     Dates: start: 20080401
  2. HYDROCHLOROTHIAZIDE [Concomitant]
  3. ASPIRIN [Concomitant]
  4. CITRACAL WITH VITAMIN D [Concomitant]
  5. EYE VITE [Concomitant]

REACTIONS (2)
  - ASTHENIA [None]
  - FATIGUE [None]
